FAERS Safety Report 7793426-X (Version None)
Quarter: 2011Q4

REPORT INFORMATION
  Report Type: 
  Country: None (occurrence: None)
  Receive Date: 20111003
  Receipt Date: 20110920
  Transmission Date: 20120403
  Serious: Yes (Other)
  Sender: FDA-Public Use
  Company Number: PHHY2011BR86326

PATIENT
  Age: 58 Year
  Sex: Female

DRUGS (6)
  1. OMEPRAZOLE [Suspect]
     Dosage: 20 MG, UNK
  2. ATENOLOL [Suspect]
     Dosage: 50 MG, UNK
  3. INDAPAMIDE [Concomitant]
     Dosage: 1.5 MG, UNK
  4. SIMVASTATIN [Suspect]
     Dosage: 20 MG, UNK
  5. LOSARTAN POTASSIUM [Suspect]
     Dosage: 50 MG, UNK
  6. LOSARTAN POTASSIUM [Suspect]
     Dosage: 50 MG, BID

REACTIONS (3)
  - HEART RATE INCREASED [None]
  - BLOOD PRESSURE INCREASED [None]
  - HEADACHE [None]
